FAERS Safety Report 14017809 (Version 2)
Quarter: 2017Q4

REPORT INFORMATION
  Report Type: Spontaneous
  Country: US (occurrence: US)
  Receive Date: 20170927
  Receipt Date: 20171024
  Transmission Date: 20180321
  Serious: Yes (Hospitalization, Other)
  Sender: FDA-Public Use
  Company Number: US-CELGENEUS-USA-20170907107

PATIENT
  Age: 59 Year
  Sex: Female

DRUGS (1)
  1. REVLIMID [Suspect]
     Active Substance: LENALIDOMIDE
     Indication: B-CELL LYMPHOMA
     Dosage: 25 MILLIGRAM
     Route: 048
     Dates: start: 20170816, end: 20171012

REACTIONS (2)
  - Loss of consciousness [Unknown]
  - Full blood count decreased [Recovered/Resolved]

NARRATIVE: CASE EVENT DATE: 2017
